FAERS Safety Report 13609440 (Version 2)
Quarter: 2017Q2

REPORT INFORMATION
  Report Type: Spontaneous
  Country: US (occurrence: US)
  Receive Date: 20170602
  Receipt Date: 20170605
  Transmission Date: 20170830
  Serious: No
  Sender: FDA-Public Use
  Company Number: US-PFIZER INC-2857304

PATIENT
  Sex: Female

DRUGS (1)
  1. KETOROLAC TROMETHAMINE. [Suspect]
     Active Substance: KETOROLAC TROMETHAMINE
     Indication: ARTHRALGIA
     Dosage: UNK
     Dates: start: 20140101

REACTIONS (6)
  - Fatigue [Unknown]
  - Gait disturbance [Unknown]
  - Poor quality drug administered [Unknown]
  - Dysstasia [Unknown]
  - Muscular weakness [Unknown]
  - Product quality issue [Unknown]

NARRATIVE: CASE EVENT DATE: 20140101
